FAERS Safety Report 19046120 (Version 1)
Quarter: 2021Q1

REPORT INFORMATION
  Report Type: Spontaneous
  Country: US (occurrence: US)
  Receive Date: 20210322
  Receipt Date: 20210322
  Transmission Date: 20210420
  Serious: No
  Sender: FDA-Public Use
  Company Number: US-ENDO PHARMACEUTICALS INC-2020-004923

PATIENT

DRUGS (4)
  1. ZANTAC [Suspect]
     Active Substance: RANITIDINE HYDROCHLORIDE
     Indication: GASTRIC ULCER
     Dosage: UNK UNKNOWN, UNKNOWN
     Route: 048
     Dates: start: 2014, end: 2020
  2. ZANTAC [Suspect]
     Active Substance: RANITIDINE HYDROCHLORIDE
     Indication: GASTRIC ULCER
     Dosage: UNK UNKNOWN, UNKNOWN
     Route: 048
     Dates: start: 2014, end: 2020
  3. RANITIDINE HYDROCHLORIDE. [Suspect]
     Active Substance: RANITIDINE HYDROCHLORIDE
     Indication: GASTRIC ULCER
     Dosage: UNK UNKNOWN, UNKNOWN
     Route: 048
     Dates: start: 2014, end: 2020
  4. RANITIDINE. [Suspect]
     Active Substance: RANITIDINE
     Indication: GASTRIC ULCER
     Dosage: UNK UNKNOWN, UNKNOWN
     Route: 048
     Dates: start: 2014, end: 2020

REACTIONS (1)
  - Injury [Unknown]
